FAERS Safety Report 6438612-6 (Version None)
Quarter: 2009Q4

REPORT INFORMATION
  Report Type: 
  Country: None (occurrence: None)
  Receive Date: 20091110
  Receipt Date: 20091028
  Transmission Date: 20100525
  Serious: Yes (Hospitalization)
  Sender: FDA-Public Use
  Company Number: MOZO-1000247

PATIENT
  Age: 41 Year
  Sex: Male
  Weight: 71.7 kg

DRUGS (37)
  1. MOZOBIL [Suspect]
     Indication: ACUTE MYELOID LEUKAEMIA
     Dosage: 6624 MCG, QD
     Dates: start: 20090604, end: 20090607
  2. MOZOBIL [Suspect]
     Indication: HAEMATOPOIETIC STEM CELL MOBILISATION
     Dosage: 6624 MCG, QD
     Dates: start: 20090604, end: 20090607
  3. THYMOGLOBULIN [Concomitant]
  4. ALUMINIUM W (ALUMINIUM, MAGNESIUM HYDROXIDE, SIMETICONE) [Concomitant]
  5. CARVEDILOL [Concomitant]
  6. COLECALCIFEROL (COLECALCIFEROL) [Concomitant]
  7. DEXTROSE [Concomitant]
  8. DULOXETINE HYDROCHLORIDE [Concomitant]
  9. FOLIC ACID [Concomitant]
  10. FOSCARNET [Concomitant]
  11. GABAPENTIN [Concomitant]
  12. GLIPIZIDE [Concomitant]
  13. HYDROCORTISONE SODIUM SUCCINATE [Concomitant]
  14. HYDROMORPHONE HCL [Concomitant]
  15. INSULIN REGULAR (HUMAN) (INSULIN HUMAN) [Concomitant]
  16. LISINOPRIL (LISINOPRIL DIHYDRATE) [Concomitant]
  17. LORAZEPAM [Concomitant]
  18. MAGNESIUM OXIDE (MAGNESIUM OXIDE) [Concomitant]
  19. MAGNESIUM SULFATE [Concomitant]
  20. METHYLPREDNISOLONE [Concomitant]
  21. MOXIFLOXACIN HCL [Concomitant]
  22. MULTIPLE VITAMINS (ASCORBIC ACID, ERGOCALCIFEROL, FOLIC ACID, RETINOL, [Concomitant]
  23. OMEPRAZOLE [Concomitant]
  24. ONDANSETRON HYDROCHLORIDE [Concomitant]
  25. OXYBUTYNIN CHLORIDE (OXYBUTYNIN HYDROCHLORIDE) [Concomitant]
  26. OXYMORPHONE HYDROCHLORIDE (OXYMORPHONE HYDROCHLORIDE) [Concomitant]
  27. OYSTER SHELL CALCIUM (CALCIUM CARBONATE) [Concomitant]
  28. POSACONAZOLE [Concomitant]
  29. POTASSIUM CHLORIDE (POTASSIUM CHLORIDE, SODIUM CHLORIDE) [Concomitant]
  30. POTASSIUM PHOSPHATES [Concomitant]
  31. DOCUSATE SODIUM W SENNOSIDES (DOCUSATE SODIUM W SENNOSIDES) [Concomitant]
  32. SODIUM CHLORIDE 0.9% [Concomitant]
  33. SODIUM PHOSPHATE (SODIUM PHOSPHATE DIBASIC, SODIUM PHOSPHATE MONOBASIC [Concomitant]
  34. TACROLIMUS [Concomitant]
  35. VALACICLOVIR HYDROCHLORIDE (VALACICLOVIR HYDROCHLORIDE) [Concomitant]
  36. ATOVAQUONE [Concomitant]
  37. AMBIEN [Concomitant]

REACTIONS (7)
  - BK VIRUS INFECTION [None]
  - CHILLS [None]
  - CONSTIPATION [None]
  - CULTURE URINE POSITIVE [None]
  - HYDRONEPHROSIS [None]
  - RENAL FAILURE ACUTE [None]
  - VIRAL HAEMORRHAGIC CYSTITIS [None]
